FAERS Safety Report 6679884-2 (Version None)
Quarter: 2010Q2

REPORT INFORMATION
  Report Type: 
  Country: None (occurrence: None)
  Receive Date: 20100413
  Receipt Date: 20100408
  Transmission Date: 20101027
  Serious: Yes (Death, Life-Threatening, Hospitalization)
  Sender: FDA-Public Use
  Company Number: CA-CELGENEUS-028-C5013-10010502

PATIENT
  Sex: Male
  Weight: 62.5 kg

DRUGS (39)
  1. CC-5013 [Suspect]
     Indication: MULTIPLE MYELOMA
     Route: 048
     Dates: start: 20091223, end: 20100107
  2. CC-5013 [Suspect]
     Route: 048
     Dates: start: 20091126, end: 20090101
  3. DEXAMETHASONE [Suspect]
     Indication: MULTIPLE MYELOMA
     Route: 065
     Dates: start: 20091223, end: 20100107
  4. DEXAMETHASONE [Suspect]
     Route: 065
     Dates: start: 20091126, end: 20090101
  5. ALLOPURINOL [Concomitant]
     Route: 048
     Dates: start: 20091126, end: 20100110
  6. ALLOPURINOL [Concomitant]
     Dosage: 300
     Route: 065
  7. CODEINE SULFATE [Concomitant]
     Indication: PAIN
     Route: 048
     Dates: start: 20091210, end: 20100110
  8. CODEINE SULFATE [Concomitant]
     Route: 048
  9. COUMADIN [Concomitant]
     Indication: ANTICOAGULANT THERAPY
     Route: 048
     Dates: start: 20091104, end: 20091126
  10. COUMADIN [Concomitant]
     Route: 048
     Dates: start: 20091104, end: 20091126
  11. COUMADIN [Concomitant]
     Route: 048
     Dates: start: 20091215, end: 20100110
  12. COUMADIN [Concomitant]
     Route: 048
     Dates: start: 20091215, end: 20100110
  13. ATENOLOL [Concomitant]
     Indication: HYPERTENSION
     Route: 048
     Dates: start: 20020401, end: 20100110
  14. NORVASC [Concomitant]
     Indication: HYPERTENSION
     Route: 048
     Dates: start: 20020401, end: 20100110
  15. LASIX [Concomitant]
     Indication: DIURETIC THERAPY
     Route: 048
     Dates: start: 20020401, end: 20100110
  16. LASIX [Concomitant]
     Route: 051
     Dates: start: 20100109, end: 20100109
  17. K-DUR [Concomitant]
     Route: 048
     Dates: start: 20091106, end: 20100110
  18. TYLENOL-500 [Concomitant]
     Route: 065
     Dates: start: 20100106, end: 20100106
  19. TYLENOL-500 [Concomitant]
     Indication: PAIN
     Route: 048
     Dates: start: 20091209, end: 20100110
  20. TYLENOL-500 [Concomitant]
     Dosage: 325-650MG
     Route: 048
     Dates: start: 20100107, end: 20100110
  21. GRAVOL TAB [Concomitant]
     Indication: NAUSEA
     Route: 051
     Dates: start: 20100106, end: 20100110
  22. CELEXA [Concomitant]
     Indication: ANTIDEPRESSANT THERAPY
     Route: 048
     Dates: start: 20091210, end: 20100110
  23. PEPCID [Concomitant]
     Indication: GASTROINTESTINAL ULCER
     Route: 051
     Dates: start: 20100107, end: 20100110
  24. CALCIUM CARBONATE [Concomitant]
     Indication: MINERAL SUPPLEMENTATION
     Route: 048
     Dates: start: 20100107, end: 20100110
  25. CALCIUM GLUCONATE [Concomitant]
     Indication: MINERAL SUPPLEMENTATION
     Dosage: 1 BULB
     Route: 051
     Dates: start: 20100107, end: 20100107
  26. LIPITOR [Concomitant]
     Route: 048
     Dates: start: 20020401, end: 20091223
  27. EMPRACET [Concomitant]
     Indication: ANALGESIC THERAPY
     Route: 048
     Dates: start: 20091124, end: 20091209
  28. H1N1 VACCINE [Concomitant]
     Route: 030
     Dates: start: 20091101, end: 20091101
  29. BISACODYL [Concomitant]
     Indication: CONSTIPATION
     Route: 048
     Dates: start: 20091204, end: 20100110
  30. COLACE [Concomitant]
     Indication: CONSTIPATION
     Route: 048
     Dates: start: 20091204, end: 20100110
  31. HALDOL [Concomitant]
     Route: 051
     Dates: start: 20100108, end: 20100110
  32. VITAMIN K TAB [Concomitant]
     Indication: ABNORMAL CLOTTING FACTOR
     Route: 058
     Dates: start: 20100108, end: 20100108
  33. ALBUMIN (HUMAN) [Concomitant]
     Dosage: 100 UNITS
     Route: 051
     Dates: start: 20100108, end: 20100108
  34. METOPROLOL TARTRATE [Concomitant]
     Indication: HYPERTENSION
     Route: 051
     Dates: start: 20100108, end: 20100108
  35. ATIVAN [Concomitant]
     Indication: ANXIOLYTIC THERAPY
     Route: 048
     Dates: start: 20100108, end: 20100110
  36. DILAUDID [Concomitant]
     Indication: PAIN
     Route: 058
     Dates: start: 20100109, end: 20100110
  37. CITALOPRAM HYDROBROMIDE [Concomitant]
     Indication: DRUG USE FOR UNKNOWN INDICATION
     Route: 065
  38. OXAZEPAM [Concomitant]
     Indication: DRUG USE FOR UNKNOWN INDICATION
     Dosage: 10
     Route: 065
  39. BENADRYL [Concomitant]
     Indication: DRUG USE FOR UNKNOWN INDICATION
     Route: 065

REACTIONS (6)
  - DIARRHOEA [None]
  - MULTI-ORGAN FAILURE [None]
  - NEUTROPENIA [None]
  - RASH MACULAR [None]
  - RENAL FAILURE [None]
  - SEPTIC SHOCK [None]
